FAERS Safety Report 6188503-3 (Version None)
Quarter: 2009Q2

REPORT INFORMATION
  Report Type: 
  Country: None (occurrence: None)
  Receive Date: 20090513
  Receipt Date: 20090501
  Transmission Date: 20091009
  Serious: Yes (Other)
  Sender: FDA-Public Use
  Company Number: CA-PFIZER INC-2008032822

PATIENT

DRUGS (1)
  1. CHAMPIX [Suspect]
     Indication: SMOKING CESSATION THERAPY
     Dosage: UNK
     Dates: start: 20070928, end: 20071028

REACTIONS (15)
  - ABDOMINAL PAIN UPPER [None]
  - BLOOD GLUCOSE INCREASED [None]
  - BLOOD PRESSURE INCREASED [None]
  - COLD SWEAT [None]
  - CONTUSION [None]
  - ERYTHEMA [None]
  - FACIAL PAIN [None]
  - FEELING COLD [None]
  - MALAISE [None]
  - OEDEMA PERIPHERAL [None]
  - PAIN IN EXTREMITY [None]
  - RENAL PAIN [None]
  - SKIN EXFOLIATION [None]
  - TREMOR [None]
  - URTICARIA [None]
